FAERS Safety Report 10066620 (Version 2)
Quarter: 2014Q2

REPORT INFORMATION
  Report Type: Report from Study
  Country: CZ (occurrence: CZ)
  Receive Date: 20140408
  Receipt Date: 20140425
  Transmission Date: 20141212
  Serious: Yes (Life-Threatening, Hospitalization, Other)
  Sender: FDA-Public Use
  Company Number: PHHY2014CZ040998

PATIENT
  Age: 68 Year
  Sex: Male
  Weight: 88 kg

DRUGS (15)
  1. EVEROLIMUS [Suspect]
     Indication: RENAL CELL CARCINOMA
     Dosage: 5 MG, QD
     Route: 048
     Dates: start: 20130410, end: 20130812
  2. EVEROLIMUS [Suspect]
     Dosage: 5 MG, QD
     Route: 048
     Dates: start: 20130828, end: 20131022
  3. EVEROLIMUS [Suspect]
     Dosage: 5 MG, QD
     Route: 048
     Dates: start: 20131107, end: 20140311
  4. LENVATINIB/E7080 [Suspect]
     Indication: METASTATIC RENAL CELL CARCINOMA
     Dosage: 18 MG, QD
     Route: 048
     Dates: start: 20130410, end: 20130812
  5. LENVATINIB/E7080 [Suspect]
     Dosage: 18 MG, QD
     Route: 048
     Dates: start: 20130828, end: 20131022
  6. LENVATINIB/E7080 [Suspect]
     Dosage: 14 MG, QD
     Route: 048
     Dates: start: 20131107, end: 20140311
  7. EUTHYROX [Concomitant]
     Indication: HYPOTHYROIDISM
     Route: 048
     Dates: start: 20120801
  8. PRESTARIUM NEO [Concomitant]
     Indication: HYPERTENSION
     Dosage: 5 MG, UNK
     Dates: end: 20130813
  9. PRESTARIUM NEO [Concomitant]
     Dosage: .5 MG, UNK
     Dates: start: 20130919
  10. AGEN [Concomitant]
     Dosage: 2.5 MG, UNK
     Dates: end: 20130813
  11. ANOPYRIN [Concomitant]
     Dosage: 100 MG, UNK
     Dates: start: 2000
  12. MILURIT [Concomitant]
     Indication: HYPERURICAEMIA
     Dosage: 100 MG, UNK
     Dates: start: 2008
  13. TORVACARD [Concomitant]
     Dosage: 10 MG, UNK
     Dates: end: 20130813
  14. CONCOR [Concomitant]
     Indication: ATRIAL FIBRILLATION
     Dosage: 5 MG, DAILY
     Route: 048
     Dates: start: 20140312
  15. CALTRATE [Concomitant]
     Indication: PROPHYLAXIS
     Dosage: 1 DF, DAILY
     Route: 048
     Dates: start: 20131121

REACTIONS (24)
  - Cardiac failure [Recovered/Resolved]
  - Nephropathy toxic [Unknown]
  - Blood urea increased [Recovered/Resolved]
  - Blood creatinine increased [Recovered/Resolved]
  - Dyspepsia [Unknown]
  - Decreased appetite [Recovered/Resolved]
  - Weight decreased [Recovered/Resolved]
  - Nausea [Recovered/Resolved]
  - Asthenia [Recovered/Resolved]
  - Hypokalaemia [Recovered/Resolved]
  - Dyspnoea [Not Recovered/Not Resolved]
  - Dehydration [Recovered/Resolved]
  - General physical health deterioration [Recovered/Resolved]
  - Eating disorder [Unknown]
  - Fluid intake reduced [Unknown]
  - Malaise [Unknown]
  - Diarrhoea [Recovered/Resolved]
  - Vomiting [Recovered/Resolved]
  - Dizziness [Recovered/Resolved]
  - Pyrexia [Recovered/Resolved]
  - Gastritis [Unknown]
  - Gastrooesophageal reflux disease [Unknown]
  - Hypocalcaemia [Unknown]
  - Productive cough [Unknown]
